FAERS Safety Report 9245639 (Version 2)
Quarter: 2013Q2

REPORT INFORMATION
  Report Type: Spontaneous
  Country: US (occurrence: US)
  Receive Date: 20130422
  Receipt Date: 20130506
  Transmission Date: 20140414
  Serious: Yes (Hospitalization, Other)
  Sender: FDA-Public Use
  Company Number: US-SANOFI-AVENTIS-2013SA040585

PATIENT
  Age: 86 Year
  Sex: Male

DRUGS (3)
  1. LANTUS [Suspect]
     Indication: TYPE 1 DIABETES MELLITUS
     Dosage: 10 UNITS SQ DAILY DOSE:10 UNIT(S)
     Route: 058
  2. HUMALOG [Suspect]
     Indication: TYPE 1 DIABETES MELLITUS
     Dosage: 10 UNITS SQ DAILY DOSE:10 UNIT(S)
     Route: 058
  3. FLUTICASONE [Suspect]
     Indication: NASAL CONGESTION
     Dates: start: 20130408, end: 20130411

REACTIONS (2)
  - Pneumonia [Recovered/Resolved]
  - Hyperglycaemia [Recovered/Resolved]
